FAERS Safety Report 8619251-5 (Version None)
Quarter: 2012Q3

REPORT INFORMATION
  Report Type: 
  Country: None (occurrence: None)
  Receive Date: 20120824
  Receipt Date: 20120820
  Transmission Date: 20120928
  Serious: Yes (Hospitalization)
  Sender: FDA-Public Use
  Company Number: US-PFIZER INC-2012171379

PATIENT
  Age: 69 Year
  Sex: Female
  Weight: 100 kg

DRUGS (8)
  1. TIKOSYN [Suspect]
     Indication: ATRIAL FIBRILLATION
     Dosage: 0.5MG, 2X/DAY, 5 DOSES
     Route: 048
     Dates: start: 20120709, end: 20120711
  2. DILTIAZEM [Concomitant]
     Indication: ATRIAL FIBRILLATION
     Dosage: UNK
     Dates: start: 20120327
  3. DILTIAZEM [Concomitant]
     Dosage: UNK
     Dates: start: 20120401
  4. SYNTHROID [Concomitant]
     Dosage: UNK
  5. LIPITOR [Concomitant]
     Indication: DYSLIPIDAEMIA
     Dosage: UNK
     Dates: start: 19990101
  6. PRADAXA [Concomitant]
     Indication: ATRIAL FIBRILLATION
     Dosage: UNK
     Dates: start: 20120327
  7. LASIX [Concomitant]
     Dosage: UNK
  8. MULTI-VITAMINS [Concomitant]
     Dosage: UNK

REACTIONS (3)
  - HEART RATE INCREASED [None]
  - TORSADE DE POINTES [None]
  - LOSS OF CONSCIOUSNESS [None]
